FAERS Safety Report 26112784 (Version 1)
Quarter: 2025Q4

REPORT INFORMATION
  Report Type: Spontaneous
  Country: GB (occurrence: GB)
  Receive Date: 20251202
  Receipt Date: 20251202
  Transmission Date: 20260117
  Serious: Yes (Other)
  Sender: SANDOZ
  Company Number: GB-002147023-NVSC2025GB118615

PATIENT
  Age: 79 Year
  Sex: Female

DRUGS (2)
  1. MAXITROL [Suspect]
     Active Substance: DEXAMETHASONE\NEOMYCIN SULFATE\POLYMYXIN B SULFATE
     Indication: Eye operation
     Dosage: UNK
     Route: 065
  2. MAXITROL [Suspect]
     Active Substance: DEXAMETHASONE\NEOMYCIN SULFATE\POLYMYXIN B SULFATE
     Indication: Eye operation
     Dosage: UNK
     Route: 065

REACTIONS (4)
  - Eye haemorrhage [Unknown]
  - Eye pain [Unknown]
  - Drug ineffective [Unknown]
  - Product availability issue [Unknown]
